FAERS Safety Report 8188011-4 (Version None)
Quarter: 2012Q1

REPORT INFORMATION
  Report Type: 
  Country: None (occurrence: None)
  Receive Date: 20120306
  Receipt Date: 20120228
  Transmission Date: 20120608
  Serious: Yes (Hospitalization)
  Sender: FDA-Public Use
  Company Number: US-ASTRAZENECA-2012SE13992

PATIENT
  Age: 45 Year
  Sex: Female

DRUGS (4)
  1. SEROQUEL XR [Suspect]
     Route: 048
  2. TOPROL-XL [Suspect]
     Route: 048
  3. NEXIUM [Suspect]
     Route: 048
  4. CRESTOR [Suspect]
     Route: 048

REACTIONS (2)
  - HYPERTENSION [None]
  - DIZZINESS [None]
